FAERS Safety Report 25328569 (Version 1)
Quarter: 2025Q2

REPORT INFORMATION
  Report Type: Spontaneous
  Country: GB (occurrence: GB)
  Receive Date: 20250519
  Receipt Date: 20250519
  Transmission Date: 20250717
  Serious: Yes (Disabling, Other)
  Sender: TEVA
  Company Number: None

PATIENT
  Sex: Female
  Weight: 66 kg

DRUGS (1)
  1. ATORVASTATIN [Suspect]
     Active Substance: ATORVASTATIN
     Indication: Blood cholesterol increased
     Dosage: SUPPOSED TO BE 20 MG PER DAY BUT WAS TAKING TWICE A WEEK
     Route: 065
     Dates: start: 202411, end: 202505

REACTIONS (1)
  - Ligament pain [Not Recovered/Not Resolved]

NARRATIVE: CASE EVENT DATE: 20241201
